FAERS Safety Report 7473206-5 (Version None)
Quarter: 2011Q2

REPORT INFORMATION
  Report Type: 
  Country: None (occurrence: None)
  Receive Date: 20110511
  Receipt Date: 20110505
  Transmission Date: 20111010
  Serious: Yes (Other)
  Sender: FDA-Public Use
  Company Number: A0926692A

PATIENT
  Age: 79 Year
  Sex: Female

DRUGS (1)
  1. TYKERB [Suspect]
     Indication: BREAST CANCER
     Dosage: 1000MG IN THE MORNING
     Route: 065

REACTIONS (2)
  - NEOPLASM PROGRESSION [None]
  - BREAST CANCER [None]
